FAERS Safety Report 9384425 (Version 1)
Quarter: 2013Q3

REPORT INFORMATION
  Report Type: Report from Study
  Country: AR (occurrence: AR)
  Receive Date: 20130705
  Receipt Date: 20130705
  Transmission Date: 20140515
  Serious: Yes (Death)
  Sender: FDA-Public Use
  Company Number: PHHY2013AR055466

PATIENT
  Age: 72 Year
  Sex: Male

DRUGS (1)
  1. ONBREZ [Suspect]

REACTIONS (1)
  - Death [Fatal]
